FAERS Safety Report 17536776 (Version 1)
Quarter: 2020Q1

REPORT INFORMATION
  Report Type: Spontaneous
  Country: US (occurrence: US)
  Receive Date: 20200313
  Receipt Date: 20200313
  Transmission Date: 20200409
  Serious: Yes (Other)
  Sender: FDA-Public Use
  Company Number: US-009507513-2003USA002237

PATIENT
  Age: 15 Year
  Sex: Female
  Weight: 63.49 kg

DRUGS (1)
  1. NEXPLANON [Suspect]
     Active Substance: ETONOGESTREL
     Indication: CONTRACEPTION
     Dosage: 1 IMPLANT FOR 3 YEARS IN THE LEFT ARM
     Route: 059
     Dates: start: 20190708

REACTIONS (8)
  - Acne [Not Recovered/Not Resolved]
  - Headache [Not Recovered/Not Resolved]
  - Contusion [Not Recovered/Not Resolved]
  - Device dislocation [Not Recovered/Not Resolved]
  - Device breakage [Not Recovered/Not Resolved]
  - Product administered to patient of inappropriate age [Unknown]
  - Hypomenorrhoea [Not Recovered/Not Resolved]
  - Mood swings [Not Recovered/Not Resolved]

NARRATIVE: CASE EVENT DATE: 20190708
